FAERS Safety Report 5879536-2 (Version None)
Quarter: 2008Q3

REPORT INFORMATION
  Report Type: 
  Country: None (occurrence: None)
  Receive Date: 20080912
  Receipt Date: 20080903
  Transmission Date: 20090109
  Serious: No
  Sender: FDA-Public Use
  Company Number: DE-ASTRAZENECA-2008PK01365

PATIENT
  Age: 7254 Day
  Sex: Female
  Weight: 65 kg

DRUGS (2)
  1. PROPOFOL [Suspect]
     Indication: ANAESTHESIA
     Route: 042
     Dates: start: 20080603, end: 20080603
  2. ALFENTANIL [Concomitant]
     Route: 042
     Dates: start: 20080603, end: 20080603

REACTIONS (1)
  - HEMIPLEGIA [None]
